FAERS Safety Report 14498701 (Version 3)
Quarter: 2022Q1

REPORT INFORMATION
  Report Type: Spontaneous
  Country: US (occurrence: US)
  Receive Date: 20180207
  Receipt Date: 20220309
  Transmission Date: 20220423
  Serious: Yes (Other)
  Sender: FDA-Public Use
  Company Number: US-SAOL THERAPEUTICS-2018SAO00140

PATIENT
  Age: 24 Year
  Sex: Male

DRUGS (2)
  1. LIORESAL [Suspect]
     Active Substance: BACLOFEN
     Indication: Muscle spasticity
     Dosage: 777 ?G, \DAY
     Route: 037
  2. LIORESAL [Suspect]
     Active Substance: BACLOFEN
     Indication: Head injury

REACTIONS (7)
  - Catheter site related reaction [Unknown]
  - Excessive granulation tissue [Unknown]
  - Device material issue [Unknown]
  - Complication associated with device [Recovered/Resolved]
  - Device kink [Recovered/Resolved]
  - Hypertonia [Unknown]
  - Complication of device insertion [Recovered/Resolved]

NARRATIVE: CASE EVENT DATE: 20160426
